FAERS Safety Report 11701118 (Version 3)
Quarter: 2015Q4

REPORT INFORMATION
  Report Type: Spontaneous
  Country: JP (occurrence: JP)
  Receive Date: 20151105
  Receipt Date: 20151201
  Transmission Date: 20160304
  Serious: Yes (Death, Life-Threatening, Hospitalization)
  Sender: FDA-Public Use
  Company Number: JP-ELI_LILLY_AND_COMPANY-JP201510009352

PATIENT
  Age: 79 Year
  Sex: Male
  Weight: 59.5 kg

DRUGS (6)
  1. HEPAFLUSH [Concomitant]
     Active Substance: HEPARIN SODIUM
     Dosage: 1000 U, OTHER
     Dates: start: 20151014, end: 20151021
  2. CYRAMZA [Suspect]
     Active Substance: RAMUCIRUMAB
     Indication: GASTRIC CANCER STAGE IV
     Dosage: 480 MG, OTHER
     Route: 042
     Dates: start: 20151014, end: 20151014
  3. DECADRON [Concomitant]
     Active Substance: DEXAMETHASONE
     Dosage: 6.6 MG, OTHER
     Dates: start: 20151014, end: 20151021
  4. TAXOL [Suspect]
     Active Substance: PACLITAXEL
     Indication: GASTRIC CANCER STAGE IV
     Dosage: 130 MG, OTHER
     Route: 042
     Dates: start: 20151014, end: 20151021
  5. GASTER [Concomitant]
     Active Substance: FAMOTIDINE
     Dosage: 20 MG, OTHER
     Dates: start: 20151014, end: 20151021
  6. POLARAMINE [Concomitant]
     Active Substance: DEXCHLORPHENIRAMINE MALEATE
     Dosage: 5 MG, OTHER
     Dates: start: 20151014, end: 20151021

REACTIONS (5)
  - Tumour haemorrhage [Fatal]
  - Decreased appetite [Not Recovered/Not Resolved]
  - Stomatitis [Not Recovered/Not Resolved]
  - Pyrexia [Unknown]
  - Neutrophil count decreased [Recovered/Resolved]

NARRATIVE: CASE EVENT DATE: 20151019
